FAERS Safety Report 6029748-2 (Version None)
Quarter: 2009Q1

REPORT INFORMATION
  Report Type: 
  Country: None (occurrence: None)
  Receive Date: 20090107
  Receipt Date: 20090106
  Transmission Date: 20090719
  Serious: Yes (Hospitalization)
  Sender: FDA-Public Use
  Company Number: PHHO2008DE14396

PATIENT
  Sex: Female

DRUGS (10)
  1. ICL670A ICL+ [Suspect]
     Indication: IRON OVERLOAD
     Dosage: 1125 MG, QD
     Route: 048
     Dates: start: 20080714, end: 20081202
  2. NEURONTIN [Concomitant]
  3. IBUPROFEN TABLETS [Concomitant]
  4. ARAVA [Concomitant]
  5. PREDNISOLONE [Concomitant]
  6. INFLIXIMAB [Concomitant]
  7. OMEPRAZOLE [Concomitant]
  8. NEXIUM [Concomitant]
  9. CALCIUM [Concomitant]
  10. LOPERAMIDE HCL [Concomitant]

REACTIONS (3)
  - DIARRHOEA [None]
  - GASTROENTERITIS [None]
  - NAUSEA [None]
